FAERS Safety Report 5702178-6 (Version None)
Quarter: 2008Q2

REPORT INFORMATION
  Report Type: 
  Country: None (occurrence: None)
  Receive Date: 20080411
  Receipt Date: 20080331
  Transmission Date: 20081010
  Serious: Yes (Other)
  Sender: FDA-Public Use
  Company Number: HK-ROCHE-556208

PATIENT
  Age: 70 Year
  Sex: Female

DRUGS (1)
  1. BONIVA [Suspect]
     Indication: OSTEOPOROSIS
     Dosage: PATIENT RECEIVED IBANDRONIC ACID ON 28 OCT 2007, 28 NOV 2007 AND 15 JAN 2008
     Route: 048
     Dates: start: 20071028, end: 20080115

REACTIONS (3)
  - CHEST PAIN [None]
  - DEPRESSION [None]
  - DYSPNOEA [None]
